FAERS Safety Report 4680502-3 (Version None)
Quarter: 2005Q2

REPORT INFORMATION
  Report Type: 
  Country: None (occurrence: None)
  Receive Date: 20050601
  Receipt Date: 20050516
  Transmission Date: 20051028
  Serious: Yes (Other)
  Sender: FDA-Public Use
  Company Number: FR_050506446

PATIENT
  Age: 57 Year
  Sex: Female

DRUGS (4)
  1. EVISTA [Suspect]
     Dates: start: 20040501, end: 20050501
  2. EPIVIR [Concomitant]
  3. VIRACEPT [Concomitant]
  4. ZERIT [Concomitant]

REACTIONS (2)
  - ALOPECIA [None]
  - VITREOUS DETACHMENT [None]
